FAERS Safety Report 14012053 (Version 3)
Quarter: 2018Q1

REPORT INFORMATION
  Report Type: Report from Study
  Country: US (occurrence: US)
  Receive Date: 20170926
  Receipt Date: 20180216
  Transmission Date: 20180508
  Serious: Yes (Hospitalization, Disabling)
  Sender: FDA-Public Use
  Company Number: PHHO2017US013050

PATIENT
  Age: 68 Year
  Sex: Female
  Weight: 65.76 kg

DRUGS (3)
  1. SIGNIFOR [Suspect]
     Active Substance: PASIREOTIDE
     Dosage: 0.3 MG/ML, BID
     Route: 058
     Dates: start: 20171027
  2. METFORMIN [Suspect]
     Active Substance: METFORMIN HYDROCHLORIDE
     Indication: TYPE 2 DIABETES MELLITUS
     Dosage: 1000 MG, BID
     Route: 048
     Dates: start: 20170406, end: 20170908
  3. SIGNIFOR [Suspect]
     Active Substance: PASIREOTIDE
     Indication: PITUITARY-DEPENDENT CUSHING^S SYNDROME
     Dosage: 0.6 MG/ML, BID
     Route: 058
     Dates: start: 20170406, end: 20170827

REACTIONS (9)
  - Diarrhoea [Recovered/Resolved]
  - Mental status changes [Recovered/Resolved]
  - Acute kidney injury [Recovered/Resolved]
  - Metabolic acidosis [Recovered/Resolved]
  - Urosepsis [Recovered/Resolved]
  - Hypovolaemia [Recovered/Resolved]
  - Hypovolaemic shock [Recovered/Resolved]
  - Dehydration [Recovered/Resolved]
  - Vomiting [Recovered/Resolved]

NARRATIVE: CASE EVENT DATE: 20170908
